FAERS Safety Report 20556459 (Version 14)
Quarter: 2023Q1

REPORT INFORMATION
  Report Type: Spontaneous
  Country: US (occurrence: US)
  Receive Date: 20220307
  Receipt Date: 20230212
  Transmission Date: 20230418
  Serious: Yes (Hospitalization, Other)
  Sender: FDA-Public Use
  Company Number: US-BEH-2022142638

PATIENT
  Age: 33 Year
  Sex: Female
  Weight: 83.447 kg

DRUGS (19)
  1. HAEGARDA [Suspect]
     Active Substance: HUMAN C1-ESTERASE INHIBITOR
     Indication: Hereditary angioedema
     Dosage: 5000 INTERNATIONAL UNIT, BIW
     Route: 058
     Dates: start: 202104
  2. HAEGARDA [Suspect]
     Active Substance: HUMAN C1-ESTERASE INHIBITOR
     Indication: Prophylaxis
     Dosage: 2000 INTERNATIONAL UNIT, BIW
     Route: 058
     Dates: start: 20210429
  3. HAEGARDA [Suspect]
     Active Substance: HUMAN C1-ESTERASE INHIBITOR
     Indication: Hereditary angioedema
     Dosage: 5000 INTERNATIONAL UNIT, BIW
     Route: 058
     Dates: start: 20190213
  4. HAEGARDA [Suspect]
     Active Substance: HUMAN C1-ESTERASE INHIBITOR
     Indication: Prophylaxis
     Dosage: 5000 INTERNATIONAL UNIT, BIW
     Route: 058
     Dates: start: 201812
  5. HAEGARDA [Suspect]
     Active Substance: HUMAN C1-ESTERASE INHIBITOR
     Dosage: 2000 INTERNATIONAL UNIT, BIW
     Route: 058
     Dates: start: 202104
  6. HAEGARDA [Suspect]
     Active Substance: HUMAN C1-ESTERASE INHIBITOR
     Dosage: 2000 INTERNATIONAL UNIT, QOW
     Route: 058
     Dates: start: 201902
  7. HAEGARDA [Suspect]
     Active Substance: HUMAN C1-ESTERASE INHIBITOR
     Dosage: 2000 INTERNATIONAL UNIT, BIW
     Route: 058
     Dates: start: 20180220
  8. HAEGARDA [Suspect]
     Active Substance: HUMAN C1-ESTERASE INHIBITOR
     Dosage: 2000 INTERNATIONAL UNIT, BIW
     Route: 058
     Dates: start: 201902
  9. HAEGARDA [Suspect]
     Active Substance: HUMAN C1-ESTERASE INHIBITOR
     Indication: Hereditary angioedema
     Dosage: 5000 INTERNATIONAL UNIT, BIW
     Route: 058
     Dates: start: 202104
  10. HAEGARDA [Suspect]
     Active Substance: HUMAN C1-ESTERASE INHIBITOR
     Indication: Prophylaxis
     Dosage: 3000 INTERNATIONAL UNIT, BIW
     Route: 058
     Dates: start: 20210429
  11. HAEGARDA [Suspect]
     Active Substance: HUMAN C1-ESTERASE INHIBITOR
     Indication: Hereditary angioedema
     Dosage: 5000 INTERNATIONAL UNIT, BIW
     Route: 058
     Dates: start: 20190213
  12. HAEGARDA [Suspect]
     Active Substance: HUMAN C1-ESTERASE INHIBITOR
     Indication: Prophylaxis
     Dosage: 5000 INTERNATIONAL UNIT, BIW
     Route: 058
     Dates: start: 201812
  13. HAEGARDA [Suspect]
     Active Substance: HUMAN C1-ESTERASE INHIBITOR
     Dosage: 3000 INTERNATIONAL UNIT, BIW
     Route: 058
     Dates: start: 202104
  14. HAEGARDA [Suspect]
     Active Substance: HUMAN C1-ESTERASE INHIBITOR
     Dosage: 3000 INTERNATIONAL UNIT, QOW
     Route: 058
     Dates: start: 201902
  15. HAEGARDA [Suspect]
     Active Substance: HUMAN C1-ESTERASE INHIBITOR
     Dosage: 3000 INTERNATIONAL UNIT, BIW
     Route: 058
     Dates: start: 20180220
  16. HAEGARDA [Suspect]
     Active Substance: HUMAN C1-ESTERASE INHIBITOR
     Dosage: 3000 INTERNATIONAL UNIT, BIW
     Route: 058
     Dates: start: 201902
  17. HAEGARDA [Suspect]
     Active Substance: HUMAN C1-ESTERASE INHIBITOR
     Dosage: 6000 INTERNATIONAL UNIT, BIW
     Route: 058
     Dates: start: 20210429
  18. HAEGARDA [Suspect]
     Active Substance: HUMAN C1-ESTERASE INHIBITOR
     Dosage: 6000 INTERNATIONAL UNIT/KILOGRAM
     Route: 058
  19. ICATIBANT [Concomitant]
     Active Substance: ICATIBANT ACETATE

REACTIONS (50)
  - Hereditary angioedema [Recovered/Resolved]
  - Maternal exposure during pregnancy [Recovered/Resolved]
  - Hereditary angioedema [Recovered/Resolved]
  - Maternal exposure during pregnancy [Unknown]
  - Hereditary angioedema [Unknown]
  - Maternal exposure during pregnancy [Recovered/Resolved]
  - Hereditary angioedema [Unknown]
  - Maternal exposure during pregnancy [Unknown]
  - Hereditary angioedema [Recovered/Resolved]
  - Maternal exposure during pregnancy [Recovered/Resolved]
  - Hereditary angioedema [Recovered/Resolved]
  - Maternal exposure during pregnancy [Recovered/Resolved]
  - Hereditary angioedema [Recovered/Resolved]
  - Maternal exposure during pregnancy [Recovered/Resolved]
  - Weight increased [Unknown]
  - Maternal exposure during pregnancy [Unknown]
  - Hereditary angioedema [Recovered/Resolved]
  - Maternal exposure during pregnancy [Recovered/Resolved]
  - Hereditary angioedema [Recovered/Resolved]
  - Maternal exposure during pregnancy [Recovered/Resolved]
  - Hereditary angioedema [Recovered/Resolved]
  - Maternal exposure during pregnancy [Recovered/Resolved]
  - Hereditary angioedema [Recovered/Resolved]
  - Maternal exposure during pregnancy [Recovered/Resolved]
  - Hereditary angioedema [Recovered/Resolved]
  - Maternal exposure during pregnancy [Recovered/Resolved]
  - Hereditary angioedema [Recovered/Resolved]
  - Maternal exposure during pregnancy [Recovered/Resolved]
  - Hereditary angioedema [Recovered/Resolved]
  - Maternal exposure during pregnancy [Recovered/Resolved]
  - Hereditary angioedema [Recovered/Resolved]
  - Maternal exposure during pregnancy [Recovered/Resolved]
  - Hereditary angioedema [Recovered/Resolved]
  - Maternal exposure during pregnancy [Recovered/Resolved]
  - Hereditary angioedema [Recovered/Resolved]
  - Maternal exposure during pregnancy [Recovered/Resolved]
  - Hereditary angioedema [Unknown]
  - Maternal exposure during pregnancy [Unknown]
  - Hereditary angioedema [Unknown]
  - Maternal exposure during pregnancy [Unknown]
  - Hereditary angioedema [Recovered/Resolved]
  - Maternal exposure during pregnancy [Recovered/Resolved]
  - Hereditary angioedema [Recovered/Resolved]
  - Maternal exposure during pregnancy [Recovered/Resolved]
  - Hereditary angioedema [Recovered/Resolved]
  - Maternal exposure during pregnancy [Recovered/Resolved]
  - Hereditary angioedema [Recovered/Resolved]
  - Maternal exposure during pregnancy [Recovered/Resolved]
  - Hereditary angioedema [Recovered/Resolved]
  - Maternal exposure during pregnancy [Recovered/Resolved]

NARRATIVE: CASE EVENT DATE: 20220219
